FAERS Safety Report 5815977-7 (Version None)
Quarter: 2008Q3

REPORT INFORMATION
  Report Type: 
  Country: None (occurrence: None)
  Receive Date: 20080721
  Receipt Date: 20080710
  Transmission Date: 20090109
  Serious: Yes (Other)
  Sender: FDA-Public Use
  Company Number: PHRM2008FR01262

PATIENT
  Sex: Male
  Weight: 66 kg

DRUGS (3)
  1. ZOMETA [Suspect]
     Indication: METASTASES TO BONE
     Dosage: 4 MG, TIW
     Dates: start: 20050101, end: 20080101
  2. NORSET [Concomitant]
  3. ESTRACYT [Concomitant]

REACTIONS (1)
  - OSTEONECROSIS [None]
